FAERS Safety Report 8653824 (Version 3)
Quarter: 2013Q2

REPORT INFORMATION
  Report Type: Spontaneous
  Country: US (occurrence: US)
  Receive Date: 20120709
  Receipt Date: 20130523
  Transmission Date: 20140414
  Serious: Yes (Other)
  Sender: FDA-Public Use
  Company Number: PHEH2012US013135

PATIENT
  Sex: Female

DRUGS (6)
  1. RECLAST [Suspect]
     Indication: OSTEOPOROSIS
     Dosage: 5 MG/ 100ML, YEARLY
     Route: 042
     Dates: start: 200906
  2. RECLAST [Suspect]
     Dosage: 5 MG/100 ML, YEARLY
     Route: 042
     Dates: start: 20120316
  3. BENICAR [Concomitant]
     Indication: HYPERTENSION
     Dosage: 5 MG, QD
     Route: 048
  4. VITAMIN D [Concomitant]
     Dosage: 1000 IU, QD
     Route: 048
  5. FOLIC ACID [Concomitant]
     Dosage: 1 MG, QD
  6. ENSURE [Concomitant]
     Dosage: UNK

REACTIONS (11)
  - Chondrocalcinosis pyrophosphate [Unknown]
  - Weight decreased [Unknown]
  - Osteoarthritis [Unknown]
  - Arthritis [Unknown]
  - Mastication disorder [Unknown]
  - Pain in jaw [Unknown]
  - Drug hypersensitivity [Unknown]
  - Dry mouth [Unknown]
  - Musculoskeletal pain [Unknown]
  - Pain in extremity [Unknown]
  - Rash [Unknown]
